FAERS Safety Report 6837153-1 (Version None)
Quarter: 2010Q3

REPORT INFORMATION
  Report Type: 
  Country: None (occurrence: None)
  Receive Date: 20100713
  Receipt Date: 20070504
  Transmission Date: 20110219
  Serious: No
  Sender: FDA-Public Use
  Company Number: US-PFIZER INC-2007037658

PATIENT
  Age: 50 Year
  Sex: Male
  Weight: 80.454 kg

DRUGS (8)
  1. CHANTIX [Suspect]
     Indication: SMOKING CESSATION THERAPY
     Dates: start: 20070101
  2. TOPROL-XL [Concomitant]
  3. AMLODIPINE [Concomitant]
  4. ATORVASTATIN CALCIUM [Concomitant]
  5. ACETYLSALICYLIC ACID [Concomitant]
  6. TRIOBE [Concomitant]
  7. METHOTREXATE [Concomitant]
  8. ETANERCEPT [Concomitant]
     Route: 058

REACTIONS (2)
  - DECREASED APPETITE [None]
  - LETHARGY [None]
